FAERS Safety Report 6558521-1 (Version None)
Quarter: 2010Q1

REPORT INFORMATION
  Report Type: 
  Country: None (occurrence: None)
  Receive Date: 20100129
  Receipt Date: 20100118
  Transmission Date: 20100710
  Serious: Yes (Other)
  Sender: FDA-Public Use
  Company Number: GB-WATSON-2010-00564

PATIENT
  Age: 81 Year
  Sex: Female

DRUGS (2)
  1. KENTERA (WATSON LABORATORIES) [Suspect]
     Indication: INCONTINENCE
     Dosage: UNK MG, DAILY
     Route: 062
  2. ROSA [Suspect]
     Indication: DRUG USE FOR UNKNOWN INDICATION
     Dosage: UNK
     Route: 065

REACTIONS (2)
  - DRUG INEFFECTIVE [None]
  - DRUG INTERACTION [None]
